FAERS Safety Report 6220055-1 (Version None)
Quarter: 2009Q2

REPORT INFORMATION
  Report Type: 
  Country: None (occurrence: None)
  Receive Date: 20090609
  Receipt Date: 20090604
  Transmission Date: 20091009
  Serious: Yes (Death)
  Sender: FDA-Public Use
  Company Number: PHHY2008US15979

PATIENT
  Sex: Male
  Weight: 70 kg

DRUGS (2)
  1. EXJADE [Suspect]
     Indication: LYMPHATIC DISORDER
     Dosage: 2500 MG, QD
     Route: 048
     Dates: start: 20070622
  2. EXJADE [Suspect]
     Indication: IRON OVERLOAD
     Dosage: 500 MG, TID
     Route: 048
     Dates: start: 20080101, end: 20080401

REACTIONS (1)
  - MULTI-ORGAN FAILURE [None]
